FAERS Safety Report 24310442 (Version 1)
Quarter: 2024Q3

REPORT INFORMATION
  Report Type: Spontaneous
  Country: PT (occurrence: None)
  Receive Date: 20240912
  Receipt Date: 20240912
  Transmission Date: 20241016
  Serious: Yes (Life-Threatening)
  Sender: ASTRAZENECA
  Company Number: 2024A205844

PATIENT
  Age: 82 Year
  Sex: Female

DRUGS (6)
  1. TEZSPIRE [Suspect]
     Active Substance: TEZEPELUMAB-EKKO
     Indication: Asthma
     Dosage: ^A CADA 28 DIAS.^ (^FORAM EFECTUADAS 2 ADMINISTRA??ES: 04/07/2024 E 01/08/2024^ DE 1,91 ML CADA)
     Dates: start: 20240704, end: 20240801
  2. BUDESONIDA + FORMOTEROL [Concomitant]
  3. LEVOTIROXINA S?DICA [Concomitant]
     Dosage: 1CP EM JEJUM
  4. FUROATO DE FLUTICASONA + VILANTEROL [Concomitant]
  5. GLYCOPYRROLATE\INDACATEROL MALEATE [Concomitant]
     Active Substance: GLYCOPYRROLATE\INDACATEROL MALEATE
     Dosage: 1CP POR DIA
  6. PREDNISOLONE [Concomitant]
     Active Substance: PREDNISOLONE
     Dosage: EM ESQUEMA DE REDU??O (5MG ?S 2?FS, 4?FS E 6?FS)

REACTIONS (1)
  - Ischaemic stroke [Recovered/Resolved]

NARRATIVE: CASE EVENT DATE: 20240811
